FAERS Safety Report 24530650 (Version 2)
Quarter: 2024Q4

REPORT INFORMATION
  Report Type: Spontaneous
  Country: BR (occurrence: BR)
  Receive Date: 20241021
  Receipt Date: 20241112
  Transmission Date: 20250114
  Serious: Yes (Hospitalization, Other)
  Sender: PURDUE
  Company Number: BR-NAPPMUNDI-GBR-2024-0120481

PATIENT
  Age: 79 Year
  Sex: Female
  Weight: 56 kg

DRUGS (6)
  1. BUPRENORPHINE [Suspect]
     Active Substance: BUPRENORPHINE
     Indication: Postoperative analgesia
     Dosage: 5 MILLIGRAM, WEEKLY (ONE PATCH EVERY SEVEN DAY)
     Route: 062
     Dates: start: 202408, end: 202409
  2. VATIS [Concomitant]
     Indication: Arrhythmia
     Dosage: EVERY 12  HOURS
     Route: 048
  3. ATACAND HCT [Concomitant]
     Active Substance: CANDESARTAN CILEXETIL\HYDROCHLOROTHIAZIDE
     Indication: Hypertension
     Dosage: ONCE A  DAY
     Route: 048
  4. BROMAZEPAM [Concomitant]
     Active Substance: BROMAZEPAM
     Indication: Initial insomnia
     Dosage: ONCE A  DAY
     Route: 048
  5. ESCITALOPRAM OXALATE [Concomitant]
     Active Substance: ESCITALOPRAM OXALATE
     Indication: Panic attack
     Dosage: ONCE A  DAY
     Route: 048
  6. PREGABALIN [Concomitant]
     Active Substance: PREGABALIN
     Indication: Spinal pain
     Dosage: EVERY 12  HOURS
     Route: 048

REACTIONS (5)
  - Pulmonary embolism [Recovered/Resolved]
  - Spinal pain [Not Recovered/Not Resolved]
  - Therapy interrupted [Unknown]
  - Product availability issue [Unknown]
  - Hypoaesthesia [Not Recovered/Not Resolved]

NARRATIVE: CASE EVENT DATE: 20240801
